FAERS Safety Report 6154084-3 (Version None)
Quarter: 2009Q2

REPORT INFORMATION
  Report Type: 
  Country: None (occurrence: None)
  Receive Date: 20090414
  Receipt Date: 20090409
  Transmission Date: 20091009
  Serious: Yes (Death)
  Sender: FDA-Public Use
  Company Number: RS-ROCHE-626604

PATIENT
  Sex: Female
  Weight: 70 kg

DRUGS (2)
  1. PEG-INTERFERON ALFA 2A (RO 25-8310) [Suspect]
     Route: 058
     Dates: start: 20090127, end: 20090324
  2. RIBAVIRIN [Suspect]
     Route: 048
     Dates: start: 20090127, end: 20090324

REACTIONS (1)
  - DEATH [None]
